FAERS Safety Report 9264477 (Version 1)
Quarter: 2013Q2

REPORT INFORMATION
  Report Type: Spontaneous
  Country: BR (occurrence: BR)
  Receive Date: 20130501
  Receipt Date: 20130501
  Transmission Date: 20140414
  Serious: Yes (Other)
  Sender: FDA-Public Use
  Company Number: BR-AMGEN-BRACT2011030997

PATIENT
  Age: 32 Year
  Sex: Female
  Weight: 87 kg

DRUGS (7)
  1. ENBREL [Suspect]
     Indication: RHEUMATOID ARTHRITIS
     Dosage: 50 MG, 1X/WEEK (ON FRIDAYS)
     Route: 058
     Dates: start: 200905
  2. ENBREL [Suspect]
     Dosage: 50 MG, QWK
     Route: 058
     Dates: start: 201212, end: 201303
  3. METHOTREXATE [Concomitant]
     Dosage: 25 MG, 1X/WEEK
  4. RANITIDINE [Concomitant]
     Dosage: 150 MG, 1X/DAY
  5. FOLIC ACID [Concomitant]
     Dosage: 1 MG, 1X/DAY
  6. PIROXICAM [Concomitant]
     Dosage: 20 MG, 1X/DAY
  7. CYCLOBENZAPRINE [Concomitant]
     Dosage: 2 MG, 1X/DAY

REACTIONS (6)
  - Hypersensitivity [Unknown]
  - Rash [Unknown]
  - Wound [Unknown]
  - Skin sensitisation [Unknown]
  - Skin atrophy [Unknown]
  - Infection [Unknown]
